FAERS Safety Report 8830684 (Version 1)
Quarter: 2012Q4

REPORT INFORMATION
  Report Type: Report from Study
  Country: JP (occurrence: JP)
  Receive Date: 20121008
  Receipt Date: 20121008
  Transmission Date: 20130627
  Serious: Yes (Hospitalization)
  Sender: FDA-Public Use
  Company Number: JP-PFIZER INC-2012242325

PATIENT
  Age: 63 Year
  Sex: Female
  Weight: 49 kg

DRUGS (11)
  1. REVATIO [Suspect]
     Indication: PULMONARY ARTERIAL HYPERTENSION
     Dosage: 5 mg, 3x/day
     Route: 048
     Dates: start: 20120612, end: 20120617
  2. REVATIO [Suspect]
     Dosage: 10 mg, 3x/day
     Route: 048
     Dates: start: 20120618, end: 20120702
  3. REVATIO [Suspect]
     Dosage: 5 mg, 3x/day
     Route: 048
     Dates: start: 20120703, end: 20120802
  4. REVATIO [Suspect]
     Dosage: 5 mg, 2x/day
     Route: 048
     Dates: start: 20120803
  5. PREDNISOLONE [Concomitant]
     Dosage: UNK
     Route: 048
     Dates: end: 20120630
  6. URSO [Concomitant]
     Dosage: UNK
     Route: 048
  7. PARIET [Concomitant]
     Dosage: UNK
     Route: 048
     Dates: end: 20120626
  8. SALIVEHT [Concomitant]
     Dosage: UNK
  9. ACTONEL [Concomitant]
     Dosage: UNK
     Route: 048
  10. MAGLAX [Concomitant]
     Dosage: UNK
     Route: 048
     Dates: end: 20120812
  11. HYALEIN MINI [Concomitant]
     Dosage: UNK
     Route: 047

REACTIONS (1)
  - Ascites [Recovering/Resolving]
